FAERS Safety Report 7255378-0 (Version None)
Quarter: 2011Q1

REPORT INFORMATION
  Report Type: 
  Country: None (occurrence: None)
  Receive Date: 20110129
  Receipt Date: 20100315
  Transmission Date: 20110831
  Serious: No
  Sender: FDA-Public Use
  Company Number: US-ABBOTT-10P-163-0629893-00

PATIENT
  Age: 42 Year
  Sex: Female

DRUGS (6)
  1. DARVOCET-N 100 [Concomitant]
     Indication: CROHN'S DISEASE
  2. HUMIRA [Suspect]
     Indication: CROHN'S DISEASE
     Dosage: 160MG DOSE
     Route: 058
     Dates: start: 20100212, end: 20100212
  3. LOMOTIL [Concomitant]
     Indication: CROHN'S DISEASE
  4. JOLIVETTE [Concomitant]
     Indication: CONTRACEPTION
  5. HUMIRA [Suspect]
     Dates: start: 20100226
  6. DARVOCET-N 100 [Concomitant]
     Indication: PAIN

REACTIONS (3)
  - OSTEOPENIA [None]
  - NIGHT SWEATS [None]
  - WEIGHT INCREASED [None]
